FAERS Safety Report 6507852-X (Version None)
Quarter: 2009Q4

REPORT INFORMATION
  Report Type: 
  Country: None (occurrence: None)
  Receive Date: 20091221
  Receipt Date: 20091214
  Transmission Date: 20100525
  Serious: Yes (Other)
  Sender: FDA-Public Use
  Company Number: A0834000A

PATIENT
  Age: 32 Year
  Sex: Female

DRUGS (1)
  1. PROMACTA [Suspect]
     Indication: IDIOPATHIC THROMBOCYTOPENIC PURPURA
     Route: 048
     Dates: start: 20090601, end: 20090801

REACTIONS (2)
  - SYSTEMIC LUPUS ERYTHEMATOSUS [None]
  - THROMBOSIS [None]
